FAERS Safety Report 19780335 (Version 1)
Quarter: 2021Q3

REPORT INFORMATION
  Report Type: Spontaneous
  Country: CA (occurrence: CA)
  Receive Date: 20210902
  Receipt Date: 20210902
  Transmission Date: 20211014
  Serious: No
  Sender: FDA-Public Use
  Company Number: CA-COVIS PHARMA GMBH-2021COV20095

PATIENT
  Sex: Male

DRUGS (5)
  1. DILTIAZEM. [Concomitant]
     Active Substance: DILTIAZEM
     Indication: PRODUCT USED FOR UNKNOWN INDICATION
  2. THYROID THERAPY [Concomitant]
     Active Substance: UNSPECIFIED INGREDIENT
     Indication: PRODUCT USED FOR UNKNOWN INDICATION
  3. OMNARIS [Suspect]
     Active Substance: CICLESONIDE
     Indication: NASAL DISORDER
     Dosage: 2 SPARY IN EACH NOSTRIL, ONCE
     Route: 055
     Dates: start: 201909, end: 201909
  4. OMNARIS [Suspect]
     Active Substance: CICLESONIDE
     Indication: UPPER-AIRWAY COUGH SYNDROME
     Dosage: 2 SPARY IN EACH NOSTRIL, ONCE
     Route: 055
     Dates: start: 201909, end: 201909
  5. CRESTOR [Concomitant]
     Active Substance: ROSUVASTATIN CALCIUM
     Indication: PRODUCT USED FOR UNKNOWN INDICATION

REACTIONS (6)
  - Insomnia [Not Recovered/Not Resolved]
  - Palpitations [Not Recovered/Not Resolved]
  - Psychomotor hyperactivity [Not Recovered/Not Resolved]
  - Anxiety [Not Recovered/Not Resolved]
  - Dyspnoea [Not Recovered/Not Resolved]
  - Restlessness [Not Recovered/Not Resolved]

NARRATIVE: CASE EVENT DATE: 201909
